FAERS Safety Report 4466632-X (Version None)
Quarter: 2004Q3

REPORT INFORMATION
  Report Type: 
  Country: None (occurrence: None)
  Receive Date: 20040930
  Receipt Date: 20040802
  Transmission Date: 20050211
  Serious: Yes (Hospitalization)
  Sender: FDA-Public Use
  Company Number: 2004-06634

PATIENT
  Sex: Male

DRUGS (3)
  1. HEPSERA [Suspect]
     Indication: HEPATITIS B
     Dosage: SEE IMAGE
     Route: 048
     Dates: start: 20030825, end: 20030901
  2. HEPSERA [Suspect]
     Indication: HEPATITIS B
     Dosage: SEE IMAGE
     Route: 048
     Dates: start: 20030901, end: 20040101
  3. HEPSERA [Suspect]
     Indication: HEPATITIS B
     Dosage: SEE IMAGE
     Route: 048
     Dates: start: 20040101, end: 20040101

REACTIONS (3)
  - FEELING ABNORMAL [None]
  - HBV DNA INCREASED [None]
  - PANCREATITIS [None]
